FAERS Safety Report 7552913-X (Version None)
Quarter: 2011Q2

REPORT INFORMATION
  Report Type: 
  Country: None (occurrence: None)
  Receive Date: 20110616
  Receipt Date: 20101019
  Transmission Date: 20111010
  Serious: No
  Sender: FDA-Public Use
  Company Number: US-ASTRAZENECA-2010SE49425

PATIENT
  Age: 86 Year
  Sex: Female

DRUGS (5)
  1. FASLODEX [Suspect]
     Route: 030
     Dates: start: 20101011
  2. FASLODEX [Suspect]
     Route: 030
  3. METOPROLOL TARTRATE [Concomitant]
  4. PRINIVIL [Concomitant]
  5. NORVASC [Concomitant]

REACTIONS (3)
  - COLD SWEAT [None]
  - TREMOR [None]
  - ASTHENIA [None]
